FAERS Safety Report 5015353-3 (Version None)
Quarter: 2006Q2

REPORT INFORMATION
  Report Type: 
  Country: None (occurrence: None)
  Receive Date: 20060530
  Receipt Date: 20060530
  Transmission Date: 20061013
  Serious: Yes (Other)
  Sender: FDA-Public Use
  Company Number: None

PATIENT
  Age: 50 Year
  Sex: Female
  Weight: 68.0396 kg

DRUGS (1)
  1. ORAL-B REMBRANDT STAIN THERAPY [Suspect]
     Indication: DRUG THERAPY
     Dosage: 10 ML
     Dates: start: 20060420, end: 20060422

REACTIONS (2)
  - CEREBROVASCULAR ACCIDENT [None]
  - LYMPHADENOPATHY [None]
